FAERS Safety Report 25003611 (Version 1)
Quarter: 2025Q1

REPORT INFORMATION
  Report Type: Spontaneous
  Country: US (occurrence: None)
  Receive Date: 20250221
  Receipt Date: 20250221
  Transmission Date: 20250409
  Serious: Yes (Hospitalization)
  Sender: FDA-CTU
  Company Number: None

PATIENT
  Age: 17 Year
  Sex: Male
  Weight: 76.5 kg

DRUGS (11)
  1. ISOTRETINOIN [Suspect]
     Active Substance: ISOTRETINOIN
     Indication: Acne
     Dates: start: 20240331, end: 20250115
  2. INSULIN NOS [Concomitant]
     Active Substance: INSULIN NOS
  3. Dexcom g7 [Concomitant]
  4. basama [Concomitant]
  5. glucoses [Concomitant]
  6. glucometer [Concomitant]
  7. ketomoter [Concomitant]
  8. ketone strips [Concomitant]
  9. DEVICE [Suspect]
     Active Substance: DEVICE
  10. needles for insulin [Concomitant]
  11. needles for glucometer and ketomter [Concomitant]

REACTIONS (7)
  - Type 1 diabetes mellitus [None]
  - Influenza [None]
  - Blood triglycerides increased [None]
  - Therapy cessation [None]
  - Dry mouth [None]
  - Oropharyngeal pain [None]
  - Urine ketone body present [None]

NARRATIVE: CASE EVENT DATE: 20250213
